FAERS Safety Report 7825410-1 (Version None)
Quarter: 2011Q4

REPORT INFORMATION
  Report Type: 
  Country: None (occurrence: None)
  Receive Date: 20111017
  Receipt Date: 20111004
  Transmission Date: 20120403
  Serious: Yes (Other)
  Sender: FDA-Public Use
  Company Number: 2011AP002319

PATIENT
  Age: 69 Year
  Sex: Female

DRUGS (2)
  1. TERBINAFINE HCL [Suspect]
     Indication: ONYCHOMYCOSIS
     Dosage: UNKNOWN;PO;UNKNOWN
     Route: 048
     Dates: start: 20110510, end: 20110723
  2. OMEPRAZOLE [Concomitant]

REACTIONS (4)
  - WEIGHT DECREASED [None]
  - DYSGEUSIA [None]
  - MOUTH ULCERATION [None]
  - DYSPHAGIA [None]
